FAERS Safety Report 4674562-3 (Version None)
Quarter: 2005Q2

REPORT INFORMATION
  Report Type: 
  Country: None (occurrence: None)
  Receive Date: 20050526
  Receipt Date: 20050517
  Transmission Date: 20051028
  Serious: Yes (Other)
  Sender: FDA-Public Use
  Company Number: US-MERCK-0505USA02120

PATIENT
  Sex: Female

DRUGS (1)
  1. VIOXX [Suspect]
     Route: 048

REACTIONS (11)
  - ADVERSE EVENT [None]
  - ANGINA PECTORIS [None]
  - ANXIETY [None]
  - CARDIAC FAILURE CONGESTIVE [None]
  - DEPRESSION [None]
  - MOTOR DYSFUNCTION [None]
  - MYOCARDIAL INFARCTION [None]
  - NEUROPATHIC PAIN [None]
  - NEUROPATHY [None]
  - PARAESTHESIA [None]
  - SENSORY DISTURBANCE [None]
